FAERS Safety Report 6155535-0 (Version None)
Quarter: 2009Q2

REPORT INFORMATION
  Report Type: 
  Country: None (occurrence: None)
  Receive Date: 20090415
  Receipt Date: 20090408
  Transmission Date: 20091009
  Serious: Yes (Death, Hospitalization)
  Sender: FDA-Public Use
  Company Number: US-ELI_LILLY_AND_COMPANY-US200904001815

PATIENT
  Sex: Female

DRUGS (9)
  1. HUMALOG MIX 75/25 [Suspect]
     Indication: TYPE 2 DIABETES MELLITUS
     Dosage: UNK, AS NEEDED
     Dates: start: 20080801
  2. HUMALOG [Suspect]
     Indication: TYPE 2 DIABETES MELLITUS
     Dosage: UNK, AS NEEDED
     Dates: start: 20080801
  3. LEVOTHYROXINE SODIUM [Concomitant]
     Indication: THYROID DISORDER
  4. AZITHROMYCIN [Concomitant]
  5. SERTRALINE HCL [Concomitant]
     Indication: DEPRESSION
  6. PROPOXYPHENE-N [Concomitant]
  7. GLIPIZIDE [Concomitant]
  8. METFORMIN HCL [Concomitant]
  9. JANUVIA [Concomitant]

REACTIONS (3)
  - DEATH [None]
  - HISTOPLASMOSIS [None]
  - HISTOPLASMOSIS DISSEMINATED [None]
